FAERS Safety Report 7392422-4 (Version None)
Quarter: 2011Q1

REPORT INFORMATION
  Report Type: 
  Country: None (occurrence: None)
  Receive Date: 20110330
  Receipt Date: 20110330
  Transmission Date: 20110831
  Serious: No
  Sender: FDA-Public Use
  Company Number: None

PATIENT
  Sex: Female
  Weight: 83.9154 kg

DRUGS (3)
  1. DARVOCET [Suspect]
     Indication: PAIN
     Dosage: 100 MG 4+ TIMES A DAY PO
     Route: 048
     Dates: start: 19910420, end: 20110228
  2. DARVOCET [Suspect]
     Indication: ARTHRITIS
     Dosage: 100 MG 4+ TIMES A DAY PO
     Route: 048
     Dates: start: 19910420, end: 20110228
  3. DARVOCET [Suspect]
     Indication: FIBROMYALGIA
     Dosage: 100 MG 4+ TIMES A DAY PO
     Route: 048
     Dates: start: 19910420, end: 20110228

REACTIONS (1)
  - CARDIAC MURMUR [None]
